FAERS Safety Report 4892522-4 (Version None)
Quarter: 2006Q1

REPORT INFORMATION
  Report Type: 
  Country: None (occurrence: None)
  Receive Date: 20060124
  Receipt Date: 20060109
  Transmission Date: 20060701
  Serious: Yes (Disabling)
  Sender: FDA-Public Use
  Company Number: MK200601-0167-1

PATIENT
  Age: 41 Year
  Sex: Female
  Weight: 40 kg

DRUGS (4)
  1. OPT. 350 100ML GERMANY ASI [Suspect]
     Indication: ARTERIOGRAM
     Dosage: 100 ML, SINGLE USE
     Dates: start: 20040906, end: 20040906
  2. MORPHINE [Concomitant]
  3. CARBAMAZEPINE [Concomitant]
  4. PARACETAMOL [Concomitant]

REACTIONS (8)
  - NERVE INJURY [None]
  - PARAPARESIS [None]
  - POST PROCEDURAL COMPLICATION [None]
  - RENAL FAILURE ACUTE [None]
  - RHABDOMYOLYSIS [None]
  - SKIN GRAFT [None]
  - SKIN NECROSIS [None]
  - THROMBOTIC THROMBOCYTOPENIC PURPURA [None]
